FAERS Safety Report 11966263 (Version 1)
Quarter: 2016Q1

REPORT INFORMATION
  Report Type: Spontaneous
  Country: US (occurrence: None)
  Receive Date: 20160126
  Receipt Date: 20160126
  Transmission Date: 20160526
  Serious: Yes (Life-Threatening)
  Sender: FDA-Public Use
  Company Number: None

PATIENT
  Age: 34 Year
  Sex: Female
  Weight: 90.72 kg

DRUGS (5)
  1. ADDERALL [Concomitant]
     Active Substance: AMPHETAMINE ASPARTATE\AMPHETAMINE SULFATE\DEXTROAMPHETAMINE SACCHARATE\DEXTROAMPHETAMINE SULFATE
  2. VIIBRYD [Concomitant]
     Active Substance: VILAZODONE HYDROCHLORIDE
  3. VYVANSE [Concomitant]
     Active Substance: LISDEXAMFETAMINE DIMESYLATE
  4. PRAZOSIN 2MG [Suspect]
     Active Substance: PRAZOSIN
     Indication: POST-TRAUMATIC STRESS DISORDER
     Dates: start: 20160121, end: 20160125
  5. PRAZOSIN 2MG [Suspect]
     Active Substance: PRAZOSIN
     Indication: SLEEP DISORDER
     Dates: start: 20160121, end: 20160125

REACTIONS (4)
  - Depression [None]
  - Abnormal behaviour [None]
  - Condition aggravated [None]
  - Suicidal ideation [None]

NARRATIVE: CASE EVENT DATE: 20160124
